FAERS Safety Report 23525934 (Version 2)
Quarter: 2024Q2

REPORT INFORMATION
  Report Type: Spontaneous
  Country: DE (occurrence: DE)
  Receive Date: 20240215
  Receipt Date: 20240415
  Transmission Date: 20240715
  Serious: Yes (Other)
  Sender: FDA-Public Use
  Company Number: DE-Merck Healthcare KGaA-2024007040

PATIENT
  Age: 34 Year
  Sex: Female

DRUGS (3)
  1. MAVENCLAD [Suspect]
     Active Substance: CLADRIBINE
     Indication: Multiple sclerosis
     Dosage: YEAR ONE WEEK ONE THERAPY
     Dates: start: 202310
  2. MAVENCLAD [Suspect]
     Active Substance: CLADRIBINE
     Dosage: YEAR ONE WEEK TWO THERAPY
     Dates: start: 202311
  3. METHYLPREDNISOLONE [Concomitant]
     Active Substance: METHYLPREDNISOLONE
     Indication: Steroid therapy
     Dosage: FOR 3 DAYS
     Route: 042
     Dates: start: 202309

REACTIONS (2)
  - Alanine aminotransferase increased [Recovered/Resolved]
  - Blood bilirubin increased [Recovered/Resolved]

NARRATIVE: CASE EVENT DATE: 20231211
